FAERS Safety Report 7423383-7 (Version None)
Quarter: 2011Q2

REPORT INFORMATION
  Report Type: 
  Country: None (occurrence: None)
  Receive Date: 20110419
  Receipt Date: 20110406
  Transmission Date: 20111010
  Serious: Yes (Hospitalization)
  Sender: FDA-Public Use
  Company Number: PHFR2011GB02380

PATIENT
  Sex: Female

DRUGS (4)
  1. LAMOTRIGINE [Concomitant]
     Dosage: 100 MG, QD
     Route: 048
  2. PAROXETINE [Concomitant]
     Dosage: 40 MG, QD
     Route: 048
  3. LITHIUM CITRATE [Concomitant]
     Dosage: 400 MG MORNING + 600 MG NIGHT
     Route: 048
  4. CLOZARIL [Suspect]
     Indication: SCHIZOPHRENIA
     Dosage: 100 MG IN MORNING AND  325 MG IN NIGHT
     Dates: start: 20090511

REACTIONS (2)
  - DEPRESSED MOOD [None]
  - SUICIDAL IDEATION [None]
